FAERS Safety Report 9742217 (Version 2)
Quarter: 2015Q1

REPORT INFORMATION
  Report Type: Spontaneous
  Country: US (occurrence: US)
  Receive Date: 20131210
  Receipt Date: 20150327
  Transmission Date: 20150721
  Serious: Yes (Other)
  Sender: FDA-Public Use
  Company Number: US-ASTELLAS-2013US012142

PATIENT
  Age: 78 Year
  Sex: Female
  Weight: 126 kg

DRUGS (1)
  1. MYRBETRIQ [Suspect]
     Active Substance: MIRABEGRON
     Indication: PRODUCT USED FOR UNKNOWN INDICATION
     Route: 048
     Dates: start: 20131030

REACTIONS (7)
  - Rash papular [Unknown]
  - Pruritus [Unknown]
  - Urticaria [Unknown]
  - Erythema [Unknown]
  - Hypersensitivity [Unknown]
  - Burning sensation [Unknown]
  - Headache [Unknown]

NARRATIVE: CASE EVENT DATE: 20131112
